FAERS Safety Report 8923570 (Version 1)
Quarter: 2012Q4

REPORT INFORMATION
  Report Type: 
  Country: CA (occurrence: CA)
  Receive Date: 20121123
  Receipt Date: 20121123
  Transmission Date: 20130627
  Serious: Yes (Death)
  Sender: FDA-Public Use
  Company Number: PHHY2012CA060722

PATIENT
  Age: 56 Year
  Sex: Female

DRUGS (2)
  1. ZOMETA [Suspect]
     Indication: COLON CANCER
     Dosage: 4 mg, every 4 weeks
     Route: 042
     Dates: start: 20111228
  2. ANTIBIOTICS [Concomitant]

REACTIONS (2)
  - Death [Fatal]
  - Device leakage [Unknown]
